FAERS Safety Report 5337712-1 (Version None)
Quarter: 2007Q2

REPORT INFORMATION
  Report Type: 
  Country: None (occurrence: None)
  Receive Date: 20070315
  Receipt Date: 20060118
  Transmission Date: 20071010
  Serious: Yes (Other)
  Sender: FDA-Public Use
  Company Number: PHEH2006US01074

PATIENT
  Sex: Female

DRUGS (1)
  1. TRILEPTAL [Suspect]
     Indication: AFFECTIVE DISORDER
     Dosage: 150 MG, BID

REACTIONS (4)
  - ABDOMINAL PAIN UPPER [None]
  - DISORIENTATION [None]
  - HEADACHE [None]
  - VOMITING [None]
